FAERS Safety Report 10503278 (Version 1)
Quarter: 2014Q4

REPORT INFORMATION
  Report Type: Not Available
  Country: US (occurrence: US)
  Receive Date: 20141008
  Receipt Date: 20141008
  Transmission Date: 20150528
  Serious: No
  Sender: FDA-Public Use
  Company Number: US-LUPIN PHARMACEUTICALS INC.-E2B_00002456

PATIENT
  Sex: Female

DRUGS (4)
  1. ATENOLOL. [Concomitant]
     Active Substance: ATENOLOL
     Indication: PRODUCT USED FOR UNKNOWN INDICATION
     Route: 065
  2. FELODIPINE. [Concomitant]
     Active Substance: FELODIPINE
     Indication: PRODUCT USED FOR UNKNOWN INDICATION
     Route: 065
     Dates: end: 201402
  3. LISINOPRIL TABLETS USP 20MG [Suspect]
     Active Substance: LISINOPRIL
     Indication: PRODUCT USED FOR UNKNOWN INDICATION
     Route: 048
     Dates: start: 20131230, end: 20140411
  4. LISINOPRIL TABLETS USP 10MG [Suspect]
     Active Substance: LISINOPRIL
     Indication: PRODUCT USED FOR UNKNOWN INDICATION
     Route: 048
     Dates: start: 20140412

REACTIONS (1)
  - Alopecia [Not Recovered/Not Resolved]
